FAERS Safety Report 8960334 (Version 1)
Quarter: 2012Q4

REPORT INFORMATION
  Report Type: 
  Country: JP (occurrence: JP)
  Receive Date: 20121211
  Receipt Date: 20121211
  Transmission Date: 20130627
  Serious: Yes (Hospitalization)
  Sender: FDA-Public Use
  Company Number: JP-VERTEX PHARMACEUTICALS INC.-2012-025848

PATIENT
  Age: 62 Year
  Sex: Female

DRUGS (5)
  1. TELAVIC [Suspect]
     Indication: CHRONIC HEPATITIS C
     Dosage: 1500 mg, qd
     Route: 048
     Dates: start: 20121108
  2. RIBAVIRIN [Suspect]
     Indication: CHRONIC HEPATITIS C
     Dosage: 400 mg, qd
     Route: 048
     Dates: start: 20121108
  3. PEGINTERFERON ALFA-2B [Suspect]
     Indication: CHRONIC HEPATITIS C
     Dosage: 1.5 ?g/kg, qw
     Route: 058
     Dates: start: 20121108
  4. LOXONIN [Concomitant]
     Dosage: 180 mg, qd
     Route: 048
     Dates: start: 20121108
  5. GASTER [Concomitant]
     Dosage: 40 mg, qd
     Route: 048
     Dates: start: 20121108

REACTIONS (2)
  - Toxic skin eruption [Recovered/Resolved]
  - Insomnia [Not Recovered/Not Resolved]
